FAERS Safety Report 8972343 (Version 1)
Quarter: 2012Q4

REPORT INFORMATION
  Report Type: Report from Study
  Country: US (occurrence: US)
  Receive Date: 20121218
  Receipt Date: 20121218
  Transmission Date: 20130627
  Serious: Yes (Other)
  Sender: FDA-Public Use
  Company Number: US-JNJFOC-20121206162

PATIENT

DRUGS (2)
  1. REMICADE [Suspect]
     Indication: CROHN^S DISEASE
     Dosage: Stop Date:  Jan10 , months since last treatment , in  it for 10 years
     Route: 042
     Dates: start: 2002
  2. REMICADE [Suspect]
     Indication: CROHN^S DISEASE
     Dosage: Stop Date:  Jan10 , months since last treatment , in  it for 10 years
     Route: 042
     Dates: start: 201201, end: 201201

REACTIONS (5)
  - Crohn^s disease [Unknown]
  - Pharyngitis streptococcal [Unknown]
  - Post streptococcal glomerulonephritis [Recovered/Resolved]
  - Pustular psoriasis [Unknown]
  - Myalgia [Unknown]
